FAERS Safety Report 19194932 (Version 1)
Quarter: 2021Q2

REPORT INFORMATION
  Report Type: Other
  Country: FI (occurrence: FI)
  Receive Date: 20210429
  Receipt Date: 20210429
  Transmission Date: 20210717
  Serious: Yes (Other)
  Sender: FDA-Public Use
  Company Number: FI-ASPEN-GLO2021FI000487

PATIENT

DRUGS (6)
  1. DEXAMETHASONE. [Suspect]
     Active Substance: DEXAMETHASONE
     Indication: PROCEDURAL NAUSEA
     Route: 065
  2. EPHEDRINE. [Suspect]
     Active Substance: EPHEDRINE
     Indication: SYMPATHOMIMETIC EFFECT
     Route: 065
  3. MIDAZOLAM. [Suspect]
     Active Substance: MIDAZOLAM
     Indication: SEDATION
     Route: 065
  4. LIDOCAINE CLARIS [Suspect]
     Active Substance: LIDOCAINE HYDROCHLORIDE
     Indication: ANAESTHESIA
     Dosage: 20 MG/ML
     Route: 065
  5. ROCURONIUM BROMIDE. [Suspect]
     Active Substance: ROCURONIUM BROMIDE
     Indication: MUSCLE RELAXANT THERAPY
     Route: 065
  6. PROPOFOL. [Suspect]
     Active Substance: PROPOFOL
     Indication: ANAESTHESIA
     Dosage: 20 MG/ML
     Route: 065

REACTIONS (3)
  - Heart rate decreased [Unknown]
  - Rapid eye movements sleep abnormal [Unknown]
  - Bradycardia [Unknown]
